FAERS Safety Report 18334162 (Version 1)
Quarter: 2020Q4

REPORT INFORMATION
  Report Type: Spontaneous
  Country: US (occurrence: US)
  Receive Date: 20201001
  Receipt Date: 20201001
  Transmission Date: 20210113
  Serious: Yes (Hospitalization)
  Sender: FDA-Public Use
  Company Number: None

PATIENT
  Age: 43 Year
  Sex: Female
  Weight: 62.3 kg

DRUGS (1)
  1. PACLITAXEL 50 ML VIAL [Suspect]
     Active Substance: PACLITAXEL
     Indication: BREAST CANCER
     Route: 042
     Dates: start: 20200902, end: 20200930

REACTIONS (5)
  - Therapy cessation [None]
  - Infusion related reaction [None]
  - Nausea [None]
  - Lip swelling [None]
  - Flushing [None]

NARRATIVE: CASE EVENT DATE: 20200930
